FAERS Safety Report 5653306-2 (Version None)
Quarter: 2008Q1

REPORT INFORMATION
  Report Type: 
  Country: None (occurrence: None)
  Receive Date: 20080306
  Receipt Date: 20080227
  Transmission Date: 20080703
  Serious: Yes (Other)
  Sender: FDA-Public Use
  Company Number: B0509753A

PATIENT
  Age: 52 Year
  Sex: Female

DRUGS (1)
  1. NIQUITIN CQ CLEAR 21MG [Suspect]
     Dosage: 1PAT PER DAY
     Route: 062
     Dates: start: 20080129

REACTIONS (9)
  - ABDOMINAL PAIN UPPER [None]
  - BLOOD GLUCOSE DECREASED [None]
  - DYSPEPSIA [None]
  - EATING DISORDER [None]
  - INSOMNIA [None]
  - LOSS OF CONSCIOUSNESS [None]
  - MALAISE [None]
  - VOMITING [None]
  - WEIGHT DECREASED [None]
